FAERS Safety Report 19201101 (Version 1)
Quarter: 2021Q2

REPORT INFORMATION
  Report Type: Report from Study
  Country: US (occurrence: US)
  Receive Date: 20210430
  Receipt Date: 20210430
  Transmission Date: 20210717
  Serious: Yes (Other)
  Sender: FDA-Public Use
  Company Number: US-JAZZ-2020-US-003528

PATIENT
  Sex: Male

DRUGS (15)
  1. XYREM [Suspect]
     Active Substance: SODIUM OXYBATE
     Dosage: 4.5 GRAM,SECOND DOSE
     Route: 048
     Dates: start: 201910
  2. XYREM [Suspect]
     Active Substance: SODIUM OXYBATE
     Indication: NARCOLEPSY
     Dosage: 2.25 GRAM, BID
     Route: 048
     Dates: start: 200406, end: 200407
  3. XYREM [Suspect]
     Active Substance: SODIUM OXYBATE
     Indication: CATAPLEXY
     Dosage: DOSE ADJUSTMENT
     Route: 048
     Dates: start: 200407, end: 201910
  4. XYREM [Suspect]
     Active Substance: SODIUM OXYBATE
     Dosage: 5 GRAM,FIRST DOSE
     Route: 048
     Dates: start: 201910
  5. ALPRAZOLAM. [Concomitant]
     Active Substance: ALPRAZOLAM
  6. AMANTADINE. [Concomitant]
     Active Substance: AMANTADINE HYDROCHLORIDE
  7. METHYLPHENIDATE. [Concomitant]
     Active Substance: METHYLPHENIDATE
  8. TYLENOL EXTRA STRENGTH [Concomitant]
     Active Substance: ACETAMINOPHEN
  9. QUETIAPINE FUMARATE. [Concomitant]
     Active Substance: QUETIAPINE FUMARATE
  10. LITHIUM CARBONATE. [Concomitant]
     Active Substance: LITHIUM CARBONATE
  11. THIORIDAZINE [Concomitant]
     Active Substance: THIORIDAZINE
  12. CHLORPROMAZINE. [Concomitant]
     Active Substance: CHLORPROMAZINE
  13. OLANZAPINE. [Concomitant]
     Active Substance: OLANZAPINE
  14. TOPAMAX [Concomitant]
     Active Substance: TOPIRAMATE
  15. LEVETIRACETAM. [Concomitant]
     Active Substance: LEVETIRACETAM

REACTIONS (3)
  - Intervertebral disc protrusion [Not Recovered/Not Resolved]
  - Spinal operation [Unknown]
  - Obesity [Recovered/Resolved]
